FAERS Safety Report 20721192 (Version 1)
Quarter: 2022Q2

REPORT INFORMATION
  Report Type: Spontaneous
  Country: PT (occurrence: PT)
  Receive Date: 20220418
  Receipt Date: 20220418
  Transmission Date: 20220720
  Serious: Yes (Other)
  Sender: FDA-Public Use
  Company Number: None

PATIENT
  Sex: Female

DRUGS (1)
  1. AMOXICILLIN\CLAVULANIC ACID [Suspect]
     Active Substance: AMOXICILLIN\CLAVULANIC ACID
     Indication: Tonsillitis
     Route: 065
     Dates: start: 20181215, end: 20181215

REACTIONS (4)
  - Erythema [Recovered/Resolved]
  - Dyspnoea [Recovered/Resolved]
  - Angioedema [Recovered/Resolved]
  - Pruritus [Recovered/Resolved]

NARRATIVE: CASE EVENT DATE: 20181215
